FAERS Safety Report 7702992-1 (Version None)
Quarter: 2011Q3

REPORT INFORMATION
  Report Type: 
  Country: None (occurrence: None)
  Receive Date: 20110823
  Receipt Date: 20110812
  Transmission Date: 20111222
  Serious: Yes (Death)
  Sender: FDA-Public Use
  Company Number: US-CELGENEUS-163-21880-11071712

PATIENT
  Sex: Female

DRUGS (5)
  1. VALCYTE [Concomitant]
     Indication: PROPHYLAXIS
     Route: 065
  2. BACTRIM DS [Concomitant]
     Route: 065
     Dates: start: 20110601
  3. CIPROFLOXACIN [Concomitant]
     Dosage: 500 MILLIGRAM
     Route: 065
     Dates: start: 20110501
  4. DOXYCYCLINE [Concomitant]
     Dosage: 100 MILLIGRAM
     Route: 065
     Dates: start: 20110711
  5. REVLIMID [Suspect]
     Dosage: 5 MILLIGRAM
     Route: 048
     Dates: start: 20110519

REACTIONS (2)
  - DEATH [None]
  - PRODUCTIVE COUGH [None]
